FAERS Safety Report 9890614 (Version 1)
Quarter: 2014Q1

REPORT INFORMATION
  Report Type: Spontaneous
  Country: DK (occurrence: None)
  Receive Date: 20140210
  Receipt Date: 20140210
  Transmission Date: 20141002
  Serious: Yes (Other)
  Sender: FDA-Public Use
  Company Number: 2014P1000772

PATIENT
  Sex: 0

DRUGS (1)
  1. FLUCONAZOLE [Suspect]
     Route: 064

REACTIONS (2)
  - Foetal exposure during pregnancy [None]
  - Fallot^s tetralogy [None]
